FAERS Safety Report 8986479 (Version 2)
Quarter: 2013Q1

REPORT INFORMATION
  Report Type: Spontaneous
  Country: JP (occurrence: JP)
  Receive Date: 20121226
  Receipt Date: 20130107
  Transmission Date: 20140127
  Serious: Yes (Death)
  Sender: FDA-Public Use
  Company Number: JP-ROCHE-1170884

PATIENT
  Age: 56 Year
  Sex: Male
  Weight: 58 kg

DRUGS (13)
  1. MIRCERA [Suspect]
     Indication: NEPHROGENIC ANAEMIA
     Route: 042
     Dates: start: 20121207
  2. BAYASPIRIN [Suspect]
     Indication: PROPHYLAXIS
     Route: 048
     Dates: start: 20080331
  3. KAYEXALATE [Concomitant]
     Indication: HYPERKALAEMIA
     Route: 048
  4. SELECTOL [Concomitant]
     Indication: HYPERTENSION
     Route: 048
     Dates: start: 20121031
  5. CONIEL [Concomitant]
     Indication: HYPERTENSION
     Route: 048
     Dates: start: 20120409
  6. ALFAROL [Concomitant]
     Indication: HYPOVITAMINOSIS
     Dosage: MONEY AT MONDAY AND WEDNESDAY
     Route: 048
     Dates: start: 20110318
  7. ADALAT L [Concomitant]
     Indication: HYPERTENSION
     Dosage: MONEY AT MONDAY AND WEDNESDAY
     Route: 048
     Dates: start: 20120323
  8. MICARDIS [Concomitant]
     Indication: HYPERTENSION
     Route: 048
  9. PRECIPITATED CALCIUM CARBONATE [Concomitant]
     Indication: HYPERPHOSPHATAEMIA
     Route: 048
  10. BASEN [Concomitant]
     Indication: DIABETES MELLITUS
     Route: 048
  11. PHOSBLOCK [Concomitant]
     Indication: HYPERPHOSPHATAEMIA
     Route: 048
  12. CATAPRES [Concomitant]
     Indication: HYPERTENSION
     Dosage: MONEY AT MONDAY AND WEDNESDAY
     Route: 048
     Dates: start: 20120723
  13. NOVOLIN N [Concomitant]
     Indication: DIABETES MELLITUS
     Route: 058

REACTIONS (1)
  - Subarachnoid haemorrhage [Fatal]
